FAERS Safety Report 14922663 (Version 1)
Quarter: 2018Q2

REPORT INFORMATION
  Report Type: Spontaneous
  Country: FR (occurrence: FR)
  Receive Date: 20180522
  Receipt Date: 20180522
  Transmission Date: 20180711
  Serious: Yes (Disabling)
  Sender: FDA-Public Use
  Company Number: FR-MERCK KGAA-2048219

PATIENT
  Age: 49 Year
  Sex: Female

DRUGS (1)
  1. NOVOTHYROX [Suspect]
     Active Substance: LEVOTHYROXINE SODIUM
     Indication: PRODUCT USED FOR UNKNOWN INDICATION

REACTIONS (18)
  - Pain in extremity [None]
  - Personal relationship issue [None]
  - Red cell distribution width increased [None]
  - Haemoglobin decreased [None]
  - Loss of personal independence in daily activities [None]
  - Social avoidant behaviour [None]
  - Irritability [None]
  - Platelet count increased [None]
  - Hypersomnia [None]
  - Mean cell haemoglobin decreased [None]
  - Fatigue [None]
  - Migraine [None]
  - Asthenia [None]
  - Glycosylated haemoglobin increased [None]
  - Anisocytosis [None]
  - Emotional distress [None]
  - Mean cell haemoglobin concentration decreased [None]
  - Hypochromasia [None]

NARRATIVE: CASE EVENT DATE: 20170728
